FAERS Safety Report 25934168 (Version 1)
Quarter: 2025Q4

REPORT INFORMATION
  Report Type: Spontaneous
  Country: US (occurrence: US)
  Receive Date: 20251017
  Receipt Date: 20251017
  Transmission Date: 20260117
  Serious: No
  Sender: LEO PHARM
  Company Number: US-LEO Pharma-383543

PATIENT
  Age: 81 Year
  Sex: Male

DRUGS (1)
  1. ADBRY [Suspect]
     Active Substance: TRALOKINUMAB-LDRM
     Indication: Osteoporosis
     Dosage: 600 MG ON DAY 1, 15 UNDER THE SKIN??TREATMENT ONGOING
     Dates: start: 202509

REACTIONS (2)
  - Product use in unapproved indication [Unknown]
  - Allergy to chemicals [Unknown]
